FAERS Safety Report 14482663 (Version 1)
Quarter: 2018Q1

REPORT INFORMATION
  Report Type: Spontaneous
  Country: NL (occurrence: NL)
  Receive Date: 20180203
  Receipt Date: 20180203
  Transmission Date: 20180509
  Serious: Yes (Hospitalization)
  Sender: FDA-Public Use
  Company Number: NL-SUN PHARMACEUTICAL INDUSTRIES LTD-2018RR-162169

PATIENT

DRUGS (5)
  1. OXALIPLATIN. [Suspect]
     Active Substance: OXALIPLATIN
     Indication: COLORECTAL CANCER
     Dosage: ON 30/SEP/2016 THE PATIENT RECEIVED MOST RECENT DOSE PRIOR TO SAE
     Route: 042
     Dates: start: 20160902
  2. AVASTIN [Suspect]
     Active Substance: BEVACIZUMAB
     Indication: COLORECTAL CANCER
     Dosage: ON 30/SEP/2016 THE PATIENT RECEIVED MOST RECENT DOSE PRIOR TO SAE
     Route: 042
     Dates: start: 20160902
  3. PEGYLATED LIPOSOMAL IRINOTECAN [Suspect]
     Active Substance: IRINOTECAN HYDROCHLORIDE
     Indication: COLORECTAL CANCER
     Dosage: ON 30/SEP/2016 THE PATIENT RECEIVED MOST RECENT DOSE PRIOR TO SAE
     Route: 042
     Dates: start: 20160902
  4. LEUCOVORIN. [Suspect]
     Active Substance: LEUCOVORIN
     Indication: COLORECTAL CANCER
     Dosage: ON 30/SEP/2016 THE PATIENT RECEIVED MOST RECENT DOSE PRIOR TO SAE
     Route: 042
     Dates: start: 20160902
  5. 5-FLUOROURACIL [Suspect]
     Active Substance: FLUOROURACIL
     Indication: COLORECTAL CANCER
     Dosage: ON 30/SEP/2016 THE PATIENT RECEIVED MOST RECENT DOSE PRIOR TO SAE
     Route: 042
     Dates: start: 20160902

REACTIONS (1)
  - Device breakage [Recovered/Resolved]

NARRATIVE: CASE EVENT DATE: 20161014
